FAERS Safety Report 5744734-5 (Version None)
Quarter: 2008Q2

REPORT INFORMATION
  Report Type: 
  Country: None (occurrence: None)
  Receive Date: 20080520
  Receipt Date: 20080508
  Transmission Date: 20081010
  Serious: Yes (Hospitalization, Other)
  Sender: FDA-Public Use
  Company Number: US-PFIZER INC-2008018303

PATIENT
  Sex: Female
  Weight: 62.6 kg

DRUGS (18)
  1. LYRICA [Suspect]
     Indication: TREMOR
     Route: 048
  2. LYRICA [Suspect]
     Indication: PARAESTHESIA
  3. ALL OTHER THERAPEUTIC PRODUCTS [Concomitant]
  4. AMANTADINE HCL [Concomitant]
  5. XANAX [Concomitant]
  6. ALL OTHER THERAPEUTIC PRODUCTS [Concomitant]
  7. LEXAPRO [Concomitant]
  8. LUNESTA [Concomitant]
  9. PREVACID [Concomitant]
  10. LASIX [Concomitant]
  11. ELAVIL [Concomitant]
  12. ESTRACE [Concomitant]
  13. ACETYLSALICYLIC ACID SRT [Concomitant]
  14. MECLIZINE HCL [Concomitant]
  15. TESSALON [Concomitant]
  16. PRILOSEC [Concomitant]
  17. DARVOCET [Concomitant]
  18. RISPERDAL [Concomitant]

REACTIONS (9)
  - ABASIA [None]
  - BLOOD PRESSURE FLUCTUATION [None]
  - DYSPHEMIA [None]
  - FALL [None]
  - HAEMATOCRIT DECREASED [None]
  - HAEMOGLOBIN DECREASED [None]
  - HALLUCINATION [None]
  - ILL-DEFINED DISORDER [None]
  - OVERDOSE [None]
